FAERS Safety Report 8812724 (Version 1)
Quarter: 2012Q4

REPORT INFORMATION
  Report Type: 
  Country: GB (occurrence: GB)
  Receive Date: 20120927
  Receipt Date: 20120927
  Transmission Date: 20130627
  Serious: Yes (Other)
  Sender: FDA-Public Use
  Company Number: GB-WATSON-2012-16482

PATIENT
  Age: 83 Year
  Sex: Female

DRUGS (15)
  1. OMEPRAZOLE (UNKNOWN) [Suspect]
     Indication: PRODUCT USED FOR UNKNOWN INDICATION
     Dosage: 20 mg, daily
     Route: 048
     Dates: start: 20120821
  2. AMOXICILLIN-CLAVULANATE [Suspect]
     Indication: URINARY TRACT INFECTION
     Dosage: 1.2 g, tid, 1000mg/200mg powder for solution for injection, Changed to oral 19/8/2012
     Route: 042
     Dates: start: 20120818, end: 20120819
  3. AMOXICILLIN-CLAVULANATE [Suspect]
     Dosage: 625 mg, tid, 500mg/125mg, Switched from IV route
     Route: 048
     Dates: start: 20120820, end: 20120821
  4. EPILIM [Suspect]
     Indication: GRAND MAL CONVULSION
     Dosage: 200 mg, bid
     Route: 048
     Dates: start: 20120819, end: 20120821
  5. PHENYTOIN [Suspect]
     Indication: GRAND MAL CONVULSION
     Dosage: 750 mg, daily, 750mg one off dose. 250mg/5ml.
     Route: 042
     Dates: start: 20120818, end: 20120818
  6. GENTICIN [Suspect]
     Indication: URINARY TRACT INFECTION
     Dosage: 240 mg, daily, 240mg one-off dose. 80mg/2ml.
     Route: 042
     Dates: start: 20120818, end: 20120818
  7. EBIXA [Concomitant]
     Indication: VASCULAR DEMENTIA
     Dosage: 20 mg, daily
     Route: 048
  8. CALCEOS [Concomitant]
     Indication: PRODUCT USED FOR UNKNOWN INDICATION
     Dosage: 1 DF, bid
     Route: 065
  9. BUTRANS                            /00444001/ [Concomitant]
     Indication: PRODUCT USED FOR UNKNOWN INDICATION
     Dosage: 10 ug, 1  Housr, 1 patch weekly.
     Route: 062
     Dates: start: 20120819
  10. BUTRANS                            /00444001/ [Concomitant]
     Dosage: 20 ug, daily,  1 Hours, 1 patch weekly.
     Route: 062
     Dates: start: 20120819
  11. TRIMETHOPRIM [Concomitant]
     Indication: URINARY TRACT INFECTION
     Dosage: 200 mg, bid, May have been taking prior to admission on 18/8/2012
     Route: 048
     Dates: start: 20120823
  12. MOVICOL                            /01625101/ [Concomitant]
     Indication: PRODUCT USED FOR UNKNOWN INDICATION
     Dosage: 13 g, daily, One sachet once daily.
     Route: 065
     Dates: start: 20120818
  13. PARACETAMOL [Concomitant]
     Indication: PRODUCT USED FOR UNKNOWN INDICATION
     Dosage: 1 g, qid, 1 g four times a day as required (PRN)
     Route: 048
     Dates: start: 20120818
  14. SENNA                              /00142201/ [Concomitant]
     Indication: PRODUCT USED FOR UNKNOWN INDICATION
     Dosage: 7.5 mg, daily, 7.5mg at night as required (PRN)
     Route: 065
     Dates: start: 20120818
  15. PROTELOS [Concomitant]
     Indication: PRODUCT USED FOR UNKNOWN INDICATION
     Dosage: 2 g, daily
     Route: 048
     Dates: start: 20120818

REACTIONS (3)
  - Blood creatine phosphokinase increased [Recovering/Resolving]
  - Fall [None]
  - Grand mal convulsion [None]
